FAERS Safety Report 7228138-4 (Version None)
Quarter: 2011Q1

REPORT INFORMATION
  Report Type: 
  Country: None (occurrence: None)
  Receive Date: 20110114
  Receipt Date: 20101229
  Transmission Date: 20110831
  Serious: No
  Sender: FDA-Public Use
  Company Number: US-B.I. PHARMACEUTICALS,INC./RIDGEFIELD-2010-BP-13110BP

PATIENT
  Age: 78 Year
  Sex: Male

DRUGS (7)
  1. PRADAXA [Suspect]
     Indication: ATRIAL FIBRILLATION
  2. HYDROCHLOROTHIAZIDE [Concomitant]
     Dosage: 50 MG
  3. SIMVASTATIN [Concomitant]
     Dosage: 60 MG
  4. ACTOS [Concomitant]
     Dosage: 45 MG
  5. PRADAXA [Suspect]
     Indication: CEREBROVASCULAR ACCIDENT PROPHYLAXIS
     Dosage: 300 MG
     Route: 048
     Dates: start: 20101116
  6. CARVEDILOL [Concomitant]
  7. RAMIPRIL [Concomitant]
     Dosage: 10 MG

REACTIONS (1)
  - FEELING COLD [None]
